FAERS Safety Report 11406559 (Version 1)
Quarter: 2015Q3

REPORT INFORMATION
  Report Type: Spontaneous
  Country: US (occurrence: US)
  Receive Date: 20150821
  Receipt Date: 20150821
  Transmission Date: 20151125
  Serious: No
  Sender: FDA-Public Use
  Company Number: ALCN2015US005232

PATIENT
  Sex: Female

DRUGS (2)
  1. PILOCARPIN [Concomitant]
     Indication: PRODUCT USED FOR UNKNOWN INDICATION
     Dosage: 1 GTT, TID
     Route: 047
  2. ILEVRO [Suspect]
     Active Substance: NEPAFENAC
     Indication: INFLAMMATION
     Dosage: 1 GTT, QD
     Route: 047

REACTIONS (1)
  - Drug dispensing error [Unknown]
